FAERS Safety Report 21995372 (Version 1)
Quarter: 2023Q1

REPORT INFORMATION
  Report Type: Spontaneous
  Country: US (occurrence: None)
  Receive Date: 20230213
  Receipt Date: 20230213
  Transmission Date: 20230417
  Serious: No
  Sender: FDA-Public Use
  Company Number: None

PATIENT
  Sex: Female

DRUGS (2)
  1. TALTZ [Suspect]
     Active Substance: IXEKIZUMAB
     Indication: Hidradenitis
     Dosage: 80MG/ML EVERY 4 WEEKS SUBCUTANEOUSLY?
     Route: 058
     Dates: start: 20220107
  2. TALTZ [Suspect]
     Active Substance: IXEKIZUMAB
     Indication: Psoriasis

REACTIONS (1)
  - Drug ineffective [None]
